FAERS Safety Report 7911198-2 (Version None)
Quarter: 2011Q4

REPORT INFORMATION
  Report Type: 
  Country: None (occurrence: None)
  Receive Date: 20111110
  Receipt Date: 20111110
  Transmission Date: 20120403
  Serious: Yes (Hospitalization)
  Sender: FDA-Public Use
  Company Number: None

PATIENT
  Age: 65 Year
  Sex: Male

DRUGS (13)
  1. PEPCID [Concomitant]
  2. NORVASC [Concomitant]
  3. DECADRON [Concomitant]
  4. TERAZOSIN HCL [Concomitant]
  5. ZOVIRAX [Concomitant]
  6. HYDRALAZINE HCL [Concomitant]
  7. ZOCOR [Concomitant]
  8. REVLIMID [Suspect]
     Indication: MULTIPLE MYELOMA
     Dosage: 15MG QDX21D/28D ORALLY
     Route: 048
     Dates: start: 20110201, end: 20110501
  9. COUMADIN [Concomitant]
  10. VITAMIN B-12 [Concomitant]
  11. K-TAB [Concomitant]
  12. NOVOLIN 70/30 [Concomitant]
  13. ROCALTROL [Concomitant]

REACTIONS (6)
  - ANAEMIA [None]
  - DRUG EFFECT DECREASED [None]
  - RENAL IMPAIRMENT [None]
  - SEPSIS [None]
  - RESPIRATORY DISTRESS [None]
  - PNEUMONIA [None]
